FAERS Safety Report 11092980 (Version 1)
Quarter: 2015Q2

REPORT INFORMATION
  Report Type: Spontaneous
  Country: US (occurrence: None)
  Receive Date: 20150428
  Receipt Date: 20150428
  Transmission Date: 20150821
  Serious: Yes (Other)
  Sender: FDA-Public Use
  Company Number: 2014VER00357

PATIENT
  Age: 26 Year
  Sex: Female

DRUGS (5)
  1. MYORISAN [Suspect]
     Active Substance: ISOTRETINOIN
     Indication: ACNE
     Route: 048
     Dates: start: 20140505, end: 20140530
  2. STOOL SOFTNER [Concomitant]
  3. MYORISAN [Suspect]
     Active Substance: ISOTRETINOIN
     Indication: ACNE
     Route: 048
     Dates: start: 20140530, end: 2014
  4. CLONAZEPAM. [Concomitant]
     Active Substance: CLONAZEPAM
  5. TOPAMAX [Concomitant]
     Active Substance: TOPIRAMATE

REACTIONS (7)
  - Seizure [None]
  - Lip dry [None]
  - Blood alkaline phosphatase increased [None]
  - Band neutrophil count increased [None]
  - Epistaxis [None]
  - Blood glucose increased [None]
  - Monocyte count decreased [None]

NARRATIVE: CASE EVENT DATE: 20140527
